FAERS Safety Report 17729379 (Version 3)
Quarter: 2021Q2

REPORT INFORMATION
  Report Type: Spontaneous
  Country: US (occurrence: US)
  Receive Date: 20200430
  Receipt Date: 20210624
  Transmission Date: 20210716
  Serious: Yes (Hospitalization, Other)
  Sender: FDA-Public Use
  Company Number: US-GILEAD-2020-0462682

PATIENT
  Sex: Female
  Weight: 98.87 kg

DRUGS (38)
  1. ATORVASTATIN [Concomitant]
     Active Substance: ATORVASTATIN
  2. BACTRIM [Concomitant]
     Active Substance: SULFAMETHOXAZOLE\TRIMETHOPRIM
  3. DICLOFENAC [Concomitant]
     Active Substance: DICLOFENAC
  4. ZOLOFT [Concomitant]
     Active Substance: SERTRALINE HYDROCHLORIDE
  5. TACROLIMUS. [Concomitant]
     Active Substance: TACROLIMUS
  6. HUMALOG [Concomitant]
     Active Substance: INSULIN LISPRO
  7. BENAZEPRIL [Concomitant]
     Active Substance: BENAZEPRIL HYDROCHLORIDE
  8. TYLENOL [Concomitant]
     Active Substance: ACETAMINOPHEN
  9. LANTUS [Concomitant]
     Active Substance: INSULIN GLARGINE
  10. METFORMIN [Concomitant]
     Active Substance: METFORMIN HYDROCHLORIDE
  11. NORVASC [Concomitant]
     Active Substance: AMLODIPINE BESYLATE
  12. ZESTRIL [Concomitant]
     Active Substance: LISINOPRIL
  13. GEMFIBROZIL. [Concomitant]
     Active Substance: GEMFIBROZIL
  14. DOXYCYCLINE. [Concomitant]
     Active Substance: DOXYCYCLINE
  15. STRIBILD [Suspect]
     Active Substance: COBICISTAT\ELVITEGRAVIR\EMTRICITABINE\TENOFOVIR DISOPROXIL FUMARATE
     Indication: HIV INFECTION
     Dosage: UNK
     Route: 048
     Dates: start: 201406
  16. LOTENSIN HCT [Concomitant]
     Active Substance: BENAZEPRIL HYDROCHLORIDE\HYDROCHLOROTHIAZIDE
  17. LITHIUM. [Concomitant]
     Active Substance: LITHIUM
  18. PIOGLITAZONE. [Concomitant]
     Active Substance: PIOGLITAZONE
  19. ACCUPRIL [Concomitant]
     Active Substance: QUINAPRIL HYDROCHLORIDE
  20. PAXIL CR [Concomitant]
     Active Substance: PAROXETINE HYDROCHLORIDE
  21. ASA [Concomitant]
     Active Substance: ASPIRIN
  22. AMOXICILLIN. [Concomitant]
     Active Substance: AMOXICILLIN
  23. RIOPAN MAGEN GEL [Concomitant]
  24. ATIVAN [Concomitant]
     Active Substance: LORAZEPAM
  25. BUMEX [Concomitant]
     Active Substance: BUMETANIDE
  26. HEPARIN [Concomitant]
     Active Substance: HEPARIN SODIUM
  27. IBUPROFEN. [Concomitant]
     Active Substance: IBUPROFEN
  28. PROZAC [Concomitant]
     Active Substance: FLUOXETINE HYDROCHLORIDE
  29. GABAPENTIN. [Concomitant]
     Active Substance: GABAPENTIN
  30. ATRIPLA [Suspect]
     Active Substance: EFAVIRENZ\EMTRICITABINE\TENOFOVIR DISOPROXIL FUMARATE
     Indication: HIV INFECTION
     Dosage: UNK
     Route: 048
     Dates: start: 200607, end: 202007
  31. VASOTEC [Concomitant]
     Active Substance: ENALAPRIL MALEATE
  32. MAALOX ADVANCED [ALUMINIUM HYDROXIDE;MAGNESIUM HYDROXIDE;SIMETICONE] [Concomitant]
  33. MYLANTA [Concomitant]
     Active Substance: ALUMINUM HYDROXIDE\DIMETHICONE\MAGNESIUM HYDROXIDE
  34. ZOLPIDEM [Concomitant]
     Active Substance: ZOLPIDEM TARTRATE
  35. XANAX [Concomitant]
     Active Substance: ALPRAZOLAM
  36. VALIUM [Concomitant]
     Active Substance: DIAZEPAM
  37. LASIX + K [Concomitant]
     Active Substance: FUROSEMIDE\POTASSIUM CHLORIDE
  38. NAPROXEN. [Concomitant]
     Active Substance: NAPROXEN

REACTIONS (14)
  - Bone density decreased [Unknown]
  - Anxiety [Not Recovered/Not Resolved]
  - Tooth loss [Not Recovered/Not Resolved]
  - Pain [Not Recovered/Not Resolved]
  - Chronic kidney disease [Unknown]
  - Mobility decreased [Not Recovered/Not Resolved]
  - Depression [Not Recovered/Not Resolved]
  - Hallucination [Not Recovered/Not Resolved]
  - Aggression [Not Recovered/Not Resolved]
  - Emotional distress [Not Recovered/Not Resolved]
  - Paranoia [Not Recovered/Not Resolved]
  - Foot fracture [Not Recovered/Not Resolved]
  - End stage renal disease [Not Recovered/Not Resolved]
  - Loss of personal independence in daily activities [Not Recovered/Not Resolved]

NARRATIVE: CASE EVENT DATE: 2012
